FAERS Safety Report 18677129 (Version 1)
Quarter: 2020Q4

REPORT INFORMATION
  Report Type: Spontaneous
  Country: SE (occurrence: SE)
  Receive Date: 20201229
  Receipt Date: 20201229
  Transmission Date: 20210114
  Serious: Yes (Other)
  Sender: FDA-Public Use
  Company Number: SE-MYLANLABS-2020M1104281

PATIENT
  Age: 65 Year
  Sex: Male

DRUGS (1)
  1. ENALAPRIL/HYDROCHLOROTHIAZIDE MYLAN 20 MG/12,5 MG TABLETTER [Suspect]
     Active Substance: ENALAPRIL\HYDROCHLOROTHIAZIDE
     Indication: PRODUCT USED FOR UNKNOWN INDICATION
     Dosage: 1 DOSAGE FORM, QD(20 MG/12,5 MG)
     Route: 048
     Dates: start: 201905, end: 201908

REACTIONS (2)
  - Pruritus [Recovered/Resolved]
  - Product substitution issue [Recovered/Resolved]

NARRATIVE: CASE EVENT DATE: 2019
